FAERS Safety Report 9212422 (Version 2)
Quarter: 2013Q2

REPORT INFORMATION
  Report Type: Spontaneous
  Country: US (occurrence: US)
  Receive Date: 20130404
  Receipt Date: 20130604
  Transmission Date: 20140414
  Serious: No
  Sender: FDA-Public Use
  Company Number: US-AMGEN-USASP2013019158

PATIENT
  Age: 59 Year
  Sex: Female
  Weight: 72.57 kg

DRUGS (6)
  1. ENBREL [Suspect]
     Indication: PRODUCT USED FOR UNKNOWN INDICATION
     Dosage: 50 MG, WEEKLY
     Route: 058
     Dates: start: 20130311, end: 20130320
  2. METHOTREXATE [Concomitant]
     Dosage: 25 MG, QWK
     Route: 048
  3. FOLIC ACID [Concomitant]
     Dosage: 1 MG, QD
     Route: 048
  4. TRAMADOL [Concomitant]
     Dosage: UNK
  5. VITAMINS NOS [Concomitant]
     Dosage: UNK
  6. XATRAL [Concomitant]
     Dosage: UNK

REACTIONS (4)
  - Nasal discomfort [Not Recovered/Not Resolved]
  - Sinus disorder [Not Recovered/Not Resolved]
  - Cough [Not Recovered/Not Resolved]
  - Dyspnoea [Not Recovered/Not Resolved]
